FAERS Safety Report 8817758 (Version 2)
Quarter: 2012Q4

REPORT INFORMATION
  Report Type: 
  Country: GB (occurrence: GB)
  Receive Date: 20121001
  Receipt Date: 20121009
  Transmission Date: 20130627
  Serious: Yes (Hospitalization, Other)
  Sender: FDA-Public Use
  Company Number: GB-PFIZER INC-2012234386

PATIENT
  Age: 19 Year
  Sex: Female
  Weight: 70 kg

DRUGS (8)
  1. SULFASALAZINE [Suspect]
     Indication: COLITIS ULCERATIVE
     Dosage: 1 g, 4x/day
     Route: 048
     Dates: start: 20120717, end: 20120902
  2. CICLOSPORIN [Concomitant]
     Dosage: Ciclosporin was also stopped by the GPand has not been re introduced
     Dates: end: 20120902
  3. PREDNISOLONE [Concomitant]
  4. OMEPRAZOLE [Concomitant]
  5. CALCEOS [Concomitant]
  6. FOLIC ACID [Concomitant]
  7. MESALAZINE [Concomitant]
  8. HYDROCORTISONE [Concomitant]

REACTIONS (3)
  - Swollen tongue [Unknown]
  - Mouth ulceration [Unknown]
  - Rash generalised [Unknown]
